FAERS Safety Report 8216574-9 (Version None)
Quarter: 2012Q1

REPORT INFORMATION
  Report Type: 
  Country: None (occurrence: None)
  Receive Date: 20120316
  Receipt Date: 20120312
  Transmission Date: 20120608
  Serious: Yes (Death, Hospitalization)
  Sender: FDA-Public Use
  Company Number: FR-ASTRAZENECA-2012SE17269

PATIENT
  Sex: Female

DRUGS (7)
  1. OMEPRAZOLE [Suspect]
     Route: 048
     Dates: end: 20110226
  2. BISOPROLOL FUMARATE AND HYDROCHLOROTHIAZIDE [Suspect]
     Dosage: 10 MG/ 6.25 MG
     Route: 048
     Dates: end: 20110226
  3. CITRAFLEET [Suspect]
     Route: 048
     Dates: start: 20110222, end: 20110223
  4. CANDESARTAN CILEXETIL AND HYDROCHLOROTHIAZIDE [Suspect]
     Dosage: 16 MG /12.5 MG
     Route: 048
     Dates: end: 20110226
  5. ZOLPIDEM [Suspect]
     Route: 048
     Dates: start: 20110202, end: 20110226
  6. METFORMIN HYDROCHLORIDE [Suspect]
     Dosage: 50 MG/ 1000 MG
     Route: 048
     Dates: end: 20110226
  7. FENOFIBRATE [Suspect]
     Route: 048
     Dates: end: 20110226

REACTIONS (10)
  - RENAL FAILURE ACUTE [None]
  - CARDIO-RESPIRATORY ARREST [None]
  - COLONIC POLYP [None]
  - HYPERTENSION [None]
  - HIATUS HERNIA [None]
  - DIVERTICULUM [None]
  - GAIT SPASTIC [None]
  - MULTI-ORGAN FAILURE [None]
  - GASTRITIS [None]
  - CARDIAC ARREST [None]
